FAERS Safety Report 5630098-4 (Version None)
Quarter: 2008Q1

REPORT INFORMATION
  Report Type: 
  Country: None (occurrence: None)
  Receive Date: 20080218
  Receipt Date: 20080207
  Transmission Date: 20080703
  Serious: Yes (Other)
  Sender: FDA-Public Use
  Company Number: PHBS2008PE01949

PATIENT
  Age: 83 Year
  Sex: Female

DRUGS (2)
  1. STALEVO 100 [Suspect]
     Indication: PARKINSON'S DISEASE
     Dosage: 200/50/12.5 MG QD
     Route: 065
     Dates: start: 20070101
  2. VITAMINS [Concomitant]

REACTIONS (5)
  - ASTHENIA [None]
  - CHILLS [None]
  - FEELING ABNORMAL [None]
  - FEELING HOT [None]
  - SALIVARY HYPERSECRETION [None]
